FAERS Safety Report 7157764-6 (Version None)
Quarter: 2010Q4

REPORT INFORMATION
  Report Type: 
  Country: None (occurrence: None)
  Receive Date: 20101214
  Receipt Date: 20100406
  Transmission Date: 20110411
  Serious: No
  Sender: FDA-Public Use
  Company Number: US-ASTRAZENECA-2010SE05374

PATIENT
  Age: 70 Year
  Sex: Female
  Weight: 65.8 kg

DRUGS (2)
  1. CRESTOR [Suspect]
     Indication: HYPOCHOLESTEROLAEMIA
     Route: 048
  2. CRESTOR [Suspect]
     Route: 048
     Dates: start: 20070101

REACTIONS (5)
  - BODY HEIGHT DECREASED [None]
  - ENDODONTIC PROCEDURE [None]
  - MYALGIA [None]
  - TOOTH DISORDER [None]
  - TOOTHACHE [None]
